FAERS Safety Report 22278872 (Version 1)
Quarter: 2023Q2

REPORT INFORMATION
  Report Type: Spontaneous
  Country: DE (occurrence: DE)
  Receive Date: 20230503
  Receipt Date: 20230503
  Transmission Date: 20230721
  Serious: Yes (Other)
  Sender: FDA-Public Use
  Company Number: DE-002147023-NVSC2023DE098279

PATIENT
  Sex: Female

DRUGS (4)
  1. EVEROLIMUS [Suspect]
     Active Substance: EVEROLIMUS
     Indication: Breast cancer
     Dosage: UNK
     Route: 065
     Dates: start: 201707, end: 202009
  2. FULVESTRANT [Suspect]
     Active Substance: FULVESTRANT
     Indication: Breast cancer
     Dosage: UNK
     Route: 065
     Dates: start: 201707, end: 202009
  3. CAPECITABINE [Concomitant]
     Active Substance: CAPECITABINE
     Indication: Product used for unknown indication
     Dosage: 500 MG (3-0-3)
     Route: 065
     Dates: start: 202010, end: 202011
  4. EXEMESTANE [Concomitant]
     Active Substance: EXEMESTANE
     Indication: Product used for unknown indication
     Dosage: UNK
     Route: 065
     Dates: start: 202012, end: 202103

REACTIONS (5)
  - Metastases to liver [Unknown]
  - Hepatic cancer metastatic [Unknown]
  - Breast cancer [Unknown]
  - Liver disorder [Unknown]
  - Hepatic lesion [Unknown]

NARRATIVE: CASE EVENT DATE: 20191201
